FAERS Safety Report 18289245 (Version 1)
Quarter: 2020Q3

REPORT INFORMATION
  Report Type: Spontaneous
  Country: US (occurrence: US)
  Receive Date: 20200921
  Receipt Date: 20200921
  Transmission Date: 20201103
  Serious: No
  Sender: FDA-Public Use
  Company Number: None

PATIENT
  Age: 51 Year
  Sex: Female
  Weight: 63 kg

DRUGS (21)
  1. BIOTIN [Concomitant]
     Active Substance: BIOTIN
  2. HERCEPTIN 440MG [Concomitant]
  3. TYLENOL EXTRA STRENGTH [Concomitant]
     Active Substance: ACETAMINOPHEN
  4. CALCIUM CABONATE ? VITAMIN D [Concomitant]
  5. XGEVA [Concomitant]
     Active Substance: DENOSUMAB
  6. TUKYSA [Concomitant]
     Active Substance: TUCATINIB
  7. FEXOFENADINE 180MG [Concomitant]
     Active Substance: FEXOFENADINE HYDROCHLORIDE
  8. MELOXICAM 15MG [Concomitant]
     Active Substance: MELOXICAM
  9. IMIPRAMINE 50MG [Concomitant]
  10. CAPECITABINE. [Suspect]
     Active Substance: CAPECITABINE
     Indication: BREAST CANCER FEMALE
     Route: 048
     Dates: start: 20200814
  11. PSYLLIUM FIBER [Concomitant]
  12. SENNOSIDES?DOCUSATE [Concomitant]
  13. VENLAFAXINE ER 150MG [Concomitant]
     Active Substance: VENLAFAXINE HYDROCHLORIDE
  14. CARVEDILOL 6.25MG [Concomitant]
     Active Substance: CARVEDILOL
  15. DEXTROAMPHETAMINE SULFATE ER 5MG [Concomitant]
  16. LUPRON DEPOT [Concomitant]
     Active Substance: LEUPROLIDE ACETATE
  17. ONDANSETRON 4MG [Concomitant]
     Active Substance: ONDANSETRON
  18. ALPRAZOLAM 0.5MG [Concomitant]
     Active Substance: ALPRAZOLAM
  19. ANASTROZOLE 1MG [Concomitant]
     Active Substance: ANASTROZOLE
  20. PYRIDOXINE 100MG [Concomitant]
  21. GABAPENTIN 300MG [Concomitant]
     Active Substance: GABAPENTIN

REACTIONS (2)
  - Blister [None]
  - Nervous system disorder [None]

NARRATIVE: CASE EVENT DATE: 20200921
